FAERS Safety Report 8560335-8 (Version None)
Quarter: 2012Q3

REPORT INFORMATION
  Report Type: 
  Country: None (occurrence: None)
  Receive Date: 20120723
  Receipt Date: 20120713
  Transmission Date: 20120928
  Serious: Yes (Other)
  Sender: FDA-Public Use
  Company Number: 2012MA008827

PATIENT
  Age: 90 Year
  Sex: Female

DRUGS (9)
  1. ISOSORBIDE MONONITRATE [Concomitant]
  2. LANSOPRAZOLE [Concomitant]
  3. SIMVASTATIN [Concomitant]
  4. CLOPIDOGREL [Concomitant]
  5. LEVOTHYROXINE SODIUM [Concomitant]
  6. RAMIPRIL [Suspect]
     Dates: start: 20120306
  7. BISOPROLOL FUMARATE [Concomitant]
  8. ACETYLSALICYLIC ACID [Concomitant]
  9. FUROSEMIDE [Concomitant]

REACTIONS (1)
  - JOINT SWELLING [None]
